FAERS Safety Report 9543539 (Version 1)
Quarter: 2013Q2

REPORT INFORMATION
  Report Type: Spontaneous
  Country: US (occurrence: None)
  Receive Date: 20130524
  Receipt Date: 20130524
  Transmission Date: 20140414
  Serious: Yes (Other)
  Sender: FDA-Public Use
  Company Number: PHEH2013US001658

PATIENT
  Age: 23 Year
  Sex: Female
  Weight: 61.2 kg

DRUGS (1)
  1. GILENYA [Suspect]
     Indication: MULTIPLE SCLEROSIS
     Dates: start: 20130116, end: 20130116

REACTIONS (3)
  - Chills [None]
  - Piloerection [None]
  - Dizziness [None]
